FAERS Safety Report 8553912-1 (Version None)
Quarter: 2012Q3

REPORT INFORMATION
  Report Type: 
  Country: None (occurrence: None)
  Receive Date: 20120725
  Receipt Date: 20120725
  Transmission Date: 20120928
  Serious: Yes (Life-Threatening, Hospitalization)
  Sender: FDA-Public Use
  Company Number: None

PATIENT
  Sex: Female
  Weight: 83.9154 kg

DRUGS (1)
  1. LIPITOR [Suspect]
     Indication: BLOOD CHOLESTEROL INCREASED
     Dosage: A TABLET ONCE A DAY PO
     Route: 048

REACTIONS (6)
  - VOMITING [None]
  - DYSSTASIA [None]
  - INFLUENZA LIKE ILLNESS [None]
  - FALL [None]
  - FAECAL INCONTINENCE [None]
  - URINARY INCONTINENCE [None]
